FAERS Safety Report 5657594-8 (Version None)
Quarter: 2008Q1

REPORT INFORMATION
  Report Type: 
  Country: None (occurrence: None)
  Receive Date: 20080310
  Receipt Date: 20080228
  Transmission Date: 20080703
  Serious: Yes (Other)
  Sender: FDA-Public Use
  Company Number: JP-PFIZER INC-2008019842

PATIENT
  Sex: Female

DRUGS (3)
  1. EPIRUBICIN HYDROCHLORIDE [Suspect]
     Indication: BREAST CANCER METASTATIC
     Dosage: DAILY DOSE:20MG/M2-FREQ:CYCLIC: ONCE EVERY 4 WEEKS
     Route: 013
  2. FLUOROURACIL [Concomitant]
     Indication: BREAST CANCER METASTATIC
     Dosage: DAILY DOSE:330MG/M2-FREQ:CYCLIC: ONCE A WEEK
     Route: 013
  3. MITOMYCIN [Concomitant]
     Indication: BREAST CANCER METASTATIC
     Dosage: DAILY DOSE:2.7MG/M2-FREQ:CYCLIC: ONCE EVERY 2 WEEKS
     Route: 013

REACTIONS (1)
  - ARTERIAL SPASM [None]
